FAERS Safety Report 8984152 (Version 1)
Quarter: 2012Q4

REPORT INFORMATION
  Report Type: Spontaneous
  Country: US (occurrence: None)
  Receive Date: 20121213
  Receipt Date: 20121213
  Transmission Date: 20130627
  Serious: Yes (Death)
  Sender: FDA-Public Use
  Company Number: MC201200706

PATIENT
  Sex: Male

DRUGS (4)
  1. ANGIOMAX [Suspect]
     Indication: CAROTID ARTERY STENT INSERTION
     Dates: start: 20121129, end: 20121129
  2. CLOPIDOGREL (CLOPIDOGREL SULFATE) [Concomitant]
  3. ASPIRIN (ACETYLSALICYLIC ACID) [Concomitant]
  4. P2Y12 INHIBITOR (P2Y12 INHIBITOR) [Concomitant]

REACTIONS (2)
  - Off label use [None]
  - Thrombosis in device [None]
